FAERS Safety Report 4283374-4 (Version None)
Quarter: 2004Q1

REPORT INFORMATION
  Report Type: 
  Country: None (occurrence: None)
  Receive Date: 20040129
  Receipt Date: 20040116
  Transmission Date: 20041129
  Serious: Yes (Life-Threatening, Other)
  Sender: FDA-Public Use
  Company Number: 2003124974

PATIENT
  Age: 66 Year
  Sex: Female
  Weight: 47 kg

DRUGS (10)
  1. DIFLUCAN [Suspect]
     Indication: RESPIRATORY TRACT INFECTION FUNGAL
     Dosage: 200 MG (DAILY), ORAL
     Route: 048
     Dates: start: 20031125, end: 20031212
  2. BACTRIM [Suspect]
     Indication: STAPHYLOCOCCAL INFECTION
     Dosage: (TID), ORAL
     Route: 048
     Dates: start: 20031111, end: 20031212
  3. ERYTHROMYCIN [Concomitant]
  4. CARBOCISTEINE [Concomitant]
  5. TULOBUTEROL [Concomitant]
  6. BERIZYM (ENZYMES NOS) [Concomitant]
  7. BUCILLAMINE [Concomitant]
  8. PREDNISOLONE [Concomitant]
  9. DICLOFENAC SODIUM [Concomitant]
  10. ZOPICLONE [Concomitant]

REACTIONS (5)
  - BLOOD LACTATE DEHYDROGENASE INCREASED [None]
  - BLOOD UREA INCREASED [None]
  - HYPERKALAEMIA [None]
  - NEUTROPHIL COUNT INCREASED [None]
  - NEUTROPHIL PERCENTAGE INCREASED [None]
